FAERS Safety Report 18716578 (Version 3)
Quarter: 2021Q1

REPORT INFORMATION
  Report Type: Spontaneous
  Country: US (occurrence: US)
  Receive Date: 20210108
  Receipt Date: 20210302
  Transmission Date: 20210419
  Serious: No
  Sender: FDA-Public Use
  Company Number: US-BAUSCH-BL-2020-039226

PATIENT
  Sex: Female
  Weight: 54.93 kg

DRUGS (1)
  1. TIMOPTIC [Suspect]
     Active Substance: TIMOLOL MALEATE
     Indication: PRODUCT USED FOR UNKNOWN INDICATION
     Route: 047

REACTIONS (4)
  - Eye pain [Recovered/Resolved]
  - Asthenopia [Not Recovered/Not Resolved]
  - Feeling abnormal [Recovered/Resolved]
  - Ocular hyperaemia [Recovered/Resolved]
